FAERS Safety Report 6600894-5 (Version None)
Quarter: 2010Q1

REPORT INFORMATION
  Report Type: 
  Country: None (occurrence: None)
  Receive Date: 20100225
  Receipt Date: 20100212
  Transmission Date: 20100710
  Serious: No
  Sender: FDA-Public Use
  Company Number: A0842608A

PATIENT
  Age: 24 Year
  Sex: Female
  Weight: 51.8 kg

DRUGS (1)
  1. LAMICTAL CD [Suspect]
     Indication: DRUG USE FOR UNKNOWN INDICATION
     Route: 048
     Dates: start: 20091101, end: 20100201

REACTIONS (2)
  - DYSGEUSIA [None]
  - NAUSEA [None]
